FAERS Safety Report 16279833 (Version 1)
Quarter: 2019Q2

REPORT INFORMATION
  Report Type: Spontaneous
  Country: US (occurrence: US)
  Receive Date: 20190507
  Receipt Date: 20190507
  Transmission Date: 20190711
  Serious: Yes (Hospitalization, Other)
  Sender: FDA-Public Use
  Company Number: US-ROCHE-2312823

PATIENT
  Sex: Male

DRUGS (3)
  1. COTELLIC [Suspect]
     Active Substance: COBIMETINIB
     Indication: OESOPHAGEAL CARCINOMA
     Dosage: ONGOING:YES
     Route: 048
  2. COTELLIC [Suspect]
     Active Substance: COBIMETINIB
     Indication: PROSTATE CANCER
  3. COTELLIC [Suspect]
     Active Substance: COBIMETINIB
     Indication: THYROID CANCER

REACTIONS (3)
  - Tracheal fistula [Unknown]
  - Renal cancer [Unknown]
  - Malaise [Unknown]
